FAERS Safety Report 24813341 (Version 1)
Quarter: 2025Q1

REPORT INFORMATION
  Report Type: Spontaneous
  Country: US (occurrence: US)
  Receive Date: 20250107
  Receipt Date: 20250107
  Transmission Date: 20250409
  Serious: Yes (Hospitalization, Other)
  Sender: Kenvue
  Company Number: US-JOHNSON + JOHNSON CONSUMER SERVICES EAME-20250100361

PATIENT
  Age: 58 Year
  Sex: Female

DRUGS (1)
  1. IBUPROFEN [Suspect]
     Active Substance: IBUPROFEN
     Indication: Product used for unknown indication
     Route: 065

REACTIONS (2)
  - Gastrointestinal fistula [Recovered/Resolved]
  - Gastric ulcer haemorrhage [Recovered/Resolved]
